FAERS Safety Report 15844520 (Version 4)
Quarter: 2020Q4

REPORT INFORMATION
  Report Type: Spontaneous
  Country: US (occurrence: US)
  Receive Date: 20190118
  Receipt Date: 20201214
  Transmission Date: 20210113
  Serious: Yes (Hospitalization, Other)
  Sender: FDA-Public Use
  Company Number: US-VIFOR (INTERNATIONAL) INC.-VIT-2019-00288

PATIENT
  Age: 61 Year
  Sex: Male

DRUGS (10)
  1. FENOFIBRATE MICRONIZED [Concomitant]
     Active Substance: FENOFIBRATE
  2. JANUVIA [Concomitant]
     Active Substance: SITAGLIPTIN PHOSPHATE
  3. PIOGLITAZONE HCL [Concomitant]
     Active Substance: PIOGLITAZONE
  4. LISINOPRIL. [Concomitant]
     Active Substance: LISINOPRIL
  5. VIAGRA [Concomitant]
     Active Substance: SILDENAFIL CITRATE
  6. LANTUS SOLOSTAR [Concomitant]
     Active Substance: INSULIN GLARGINE
  7. ISOSORBIDE MONONITRATE ER [Concomitant]
     Active Substance: ISOSORBIDE MONONITRATE
  8. LASIX [Concomitant]
     Active Substance: FUROSEMIDE
  9. SODIUM BICARBONATE. [Concomitant]
     Active Substance: SODIUM BICARBONATE
  10. VELTASSA [Suspect]
     Active Substance: PATIROMER
     Indication: HYPERKALAEMIA
     Route: 048
     Dates: start: 20160421

REACTIONS (6)
  - Limb operation [Unknown]
  - Malignant melanoma [Unknown]
  - Infection [Unknown]
  - Vascular operation [Unknown]
  - Blood potassium increased [Unknown]
  - Product dose omission in error [Unknown]

NARRATIVE: CASE EVENT DATE: 201812
